FAERS Safety Report 6031636-2 (Version None)
Quarter: 2008Q4

REPORT INFORMATION
  Report Type: 
  Country: None (occurrence: None)
  Receive Date: 20081229
  Receipt Date: 20080317
  Transmission Date: 20090506
  Serious: Yes (Other)
  Sender: FDA-Public Use
  Company Number: WAES 0803USA02994

PATIENT
  Sex: Female

DRUGS (1)
  1. ZETIA [Suspect]
     Indication: BLOOD CHOLESTEROL INCREASED
     Dosage: UNK UNK PO
     Route: 048
     Dates: start: 20080201

REACTIONS (5)
  - BACK PAIN [None]
  - FATIGUE [None]
  - PAIN IN EXTREMITY [None]
  - RHABDOMYOLYSIS [None]
  - WRONG TECHNIQUE IN DRUG USAGE PROCESS [None]
